FAERS Safety Report 7342202-0 (Version None)
Quarter: 2011Q1

REPORT INFORMATION
  Report Type: 
  Country: None (occurrence: None)
  Receive Date: 20110309
  Receipt Date: 20110302
  Transmission Date: 20110831
  Serious: Yes (Hospitalization)
  Sender: FDA-Public Use
  Company Number: MY-BRISTOL-MYERS SQUIBB COMPANY-15532930

PATIENT
  Age: 49 Year
  Sex: Male

DRUGS (3)
  1. ARIPIPRAZOLE [Suspect]
     Indication: SCHIZOPHRENIA
     Dosage: TOTAL DOSES:52,23SEP,21OCT,18NOV10 AND 16DEC2010.10MG FROM 03JAN10-16JAN11,13JAN11.
     Route: 030
     Dates: start: 20100826
  2. VOLTAREN [Concomitant]
     Indication: PAIN
     Dates: start: 20110102, end: 20110113
  3. LORAZEPAM [Concomitant]
     Indication: INSOMNIA
     Dosage: REDUCED TO 1MG PO FROM 10JAN2010-13JAN2010 + CHANGED TO 1MG PRN SINCE 13JAN10,02JAN11
     Dates: start: 20101222, end: 20110109

REACTIONS (1)
  - SCHIZOPHRENIA [None]
